FAERS Safety Report 10224963 (Version 1)
Quarter: 2014Q2

REPORT INFORMATION
  Report Type: Spontaneous
  Country: US (occurrence: US)
  Receive Date: 20140609
  Receipt Date: 20140609
  Transmission Date: 20141212
  Serious: Yes (Hospitalization)
  Sender: FDA-Public Use
  Company Number: US-SHIRE-US201402621

PATIENT
  Age: 65 Year
  Sex: Female

DRUGS (2)
  1. CINRYZE [Suspect]
     Indication: HEREDITARY ANGIOEDEMA
     Dosage: 1000 IU, 1X/WEEK
     Route: 042
     Dates: start: 201302
  2. CINRYZE [Suspect]
     Indication: PROPHYLAXIS

REACTIONS (3)
  - Influenza [Unknown]
  - Hereditary angioedema [Unknown]
  - Inappropriate schedule of drug administration [Not Recovered/Not Resolved]
